FAERS Safety Report 5446713-4 (Version None)
Quarter: 2007Q3

REPORT INFORMATION
  Report Type: 
  Country: None (occurrence: None)
  Receive Date: 20070907
  Receipt Date: 20070104
  Transmission Date: 20080115
  Serious: Yes (Other)
  Sender: FDA-Public Use
  Company Number: US-BOEHRINGER INGELHEIM PHARMACEUTICALS, INC.-2006-BP-14459BP

PATIENT
  Age: 55 Year
  Sex: Female

DRUGS (3)
  1. ATROVENT [Suspect]
     Indication: POSTNASAL DRIP
     Route: 045
     Dates: start: 20061107, end: 20061107
  2. VITAMIN TAB [Concomitant]
  3. HERBAL SUPPLEMENTS [Concomitant]

REACTIONS (7)
  - BURNING SENSATION [None]
  - GLOSSODYNIA [None]
  - HAEMOPTYSIS [None]
  - MALIGNANT MELANOMA [None]
  - MUSCLE SPASMS [None]
  - SWOLLEN TONGUE [None]
  - URINARY TRACT INFECTION [None]
